FAERS Safety Report 5683905-3 (Version None)
Quarter: 2008Q1

REPORT INFORMATION
  Report Type: 
  Country: None (occurrence: None)
  Receive Date: 20080328
  Receipt Date: 20080314
  Transmission Date: 20080703
  Serious: Yes (Death)
  Sender: FDA-Public Use
  Company Number: US-ROCHE-553418

PATIENT
  Age: 33 Year
  Sex: Male

DRUGS (9)
  1. CLONAZEPAM [Suspect]
     Indication: ANXIETY
     Route: 048
     Dates: end: 20080101
  2. OPANA ER [Suspect]
     Route: 048
     Dates: start: 20071101, end: 20080101
  3. MICARDIS [Suspect]
     Indication: HYPERTENSION
     Route: 048
     Dates: end: 20080101
  4. BACLOFEN [Suspect]
     Indication: DRUG USE FOR UNKNOWN INDICATION
     Route: 048
     Dates: end: 20080101
  5. CYCLOBENZAPRINE HCL [Suspect]
     Indication: DRUG USE FOR UNKNOWN INDICATION
     Route: 048
     Dates: end: 20080101
  6. ROZEREM [Suspect]
     Route: 065
     Dates: end: 20080101
  7. AMITRIPTYLINE HCL [Suspect]
     Indication: DEPRESSION
     Dosage: INDICATION: ANXIETY AT BEDTIME (QHS)
     Route: 048
     Dates: end: 20080101
  8. WELLBUTRIN XL [Suspect]
     Indication: DEPRESSION
     Route: 048
     Dates: end: 20080101
  9. OXYCODONE HCL [Suspect]
     Dosage: DOSE: 5MG, 1-2 TABLETS TWICE A DAY, AS NEEDED (PRN)
     Route: 048
     Dates: end: 20080101

REACTIONS (1)
  - DRUG TOXICITY [None]
